FAERS Safety Report 6991343-6 (Version None)
Quarter: 2010Q3

REPORT INFORMATION
  Report Type: 
  Country: None (occurrence: None)
  Receive Date: 20100916
  Receipt Date: 20090728
  Transmission Date: 20110219
  Serious: No
  Sender: FDA-Public Use
  Company Number: US-WYE-H10372009

PATIENT
  Age: 57 Year
  Sex: Female
  Weight: 42.22 kg

DRUGS (1)
  1. ADVIL PM [Suspect]
     Indication: INSOMNIA
     Dosage: 2 CAPLETS THREE TIMES A DAY
     Route: 048
     Dates: start: 20090727, end: 20090727

REACTIONS (3)
  - DIARRHOEA [None]
  - ENERGY INCREASED [None]
  - OVERDOSE [None]
